FAERS Safety Report 18506121 (Version 3)
Quarter: 2020Q4

REPORT INFORMATION
  Report Type: Spontaneous
  Country: US (occurrence: US)
  Receive Date: 20201116
  Receipt Date: 20201231
  Transmission Date: 20210114
  Serious: Yes (Other)
  Sender: FDA-Public Use
  Company Number: US-UROGEN-2020-UGN-000036

PATIENT
  Age: 73 Year
  Sex: Female

DRUGS (3)
  1. JELMYTO [Suspect]
     Active Substance: MITOMYCIN
     Dosage: UNK, (INSTILATION)
     Dates: start: 20201006, end: 20201006
  2. JELMYTO [Suspect]
     Active Substance: MITOMYCIN
     Indication: TRANSITIONAL CELL CANCER OF THE RENAL PELVIS AND URETER
     Dosage: UNK, QW (1 TIMES PER WEEK, INSTILATION)
     Dates: start: 20200928, end: 20200928
  3. JELMYTO [Suspect]
     Active Substance: MITOMYCIN
     Dosage: UNK, (INSTILATION)

REACTIONS (3)
  - Rash erythematous [Recovered/Resolved]
  - Respiratory tract infection [Recovered/Resolved]
  - Rash pruritic [Recovered/Resolved]

NARRATIVE: CASE EVENT DATE: 20200929
